FAERS Safety Report 7559721-4 (Version None)
Quarter: 2011Q2

REPORT INFORMATION
  Report Type: 
  Country: None (occurrence: None)
  Receive Date: 20110621
  Receipt Date: 20110609
  Transmission Date: 20111010
  Serious: Yes (Hospitalization)
  Sender: FDA-Public Use
  Company Number: US-AMGEN-USACT2011009924

PATIENT
  Age: 52 Year
  Sex: Male
  Weight: 92 kg

DRUGS (24)
  1. EPOGEN [Concomitant]
     Dosage: UNK
     Route: 042
     Dates: start: 20110109, end: 20110213
  2. DOXEPIN [Concomitant]
     Dosage: UNK UNK, QHS
     Route: 048
     Dates: start: 20110121
  3. NOVOLOG [Concomitant]
     Dosage: UNK
     Dates: start: 20110121
  4. SORBITOL [Concomitant]
     Dosage: UNK
     Dates: start: 20050803
  5. VENOFER [Concomitant]
     Dosage: UNK UNK, QWK
     Route: 042
     Dates: start: 20110208
  6. CALCIUM CARBONATE [Concomitant]
  7. COUMADIN [Concomitant]
     Dosage: UNK UNK, QD
     Route: 048
     Dates: start: 20110121
  8. MIRALAX [Concomitant]
     Dosage: 17 G, QD
     Route: 048
     Dates: start: 20070223
  9. PROAMATINE [Concomitant]
     Dosage: 25 MG, UNK
     Dates: start: 20100729
  10. CINACALCET HYDROCHLORIDE [Suspect]
     Indication: HYPERPARATHYROIDISM SECONDARY
     Dates: start: 20070530
  11. CITALOPRAM HYDROBROMIDE [Concomitant]
     Dosage: UNK UNK, QD
     Route: 048
     Dates: start: 20110121
  12. NORCO [Concomitant]
     Dosage: UNK
     Dates: start: 20100722
  13. REGLAN [Concomitant]
     Dosage: 10 MG, QD
     Dates: start: 20100816
  14. PRILOSEC [Concomitant]
     Dosage: 25 MG, UNK
     Dates: start: 20071031
  15. PLACEBO [Suspect]
     Indication: HYPERPARATHYROIDISM SECONDARY
     Dates: start: 20070530
  16. LANTUS [Concomitant]
     Dosage: UNK
     Dates: start: 20100622
  17. NEPHRO-VITE [Concomitant]
     Dosage: UNK
     Dates: start: 20090820
  18. ASPIRIN [Concomitant]
  19. PLAVIX [Concomitant]
     Dosage: 75 MG, QD
     Route: 048
     Dates: start: 20090822
  20. LEXAPRO [Concomitant]
  21. FLUOXETINE HCL [Concomitant]
     Dosage: UNK UNK, QD
     Route: 048
     Dates: start: 20110121
  22. KAYEXALATE [Concomitant]
     Dosage: UNK
     Dates: start: 20080602
  23. SEROQUEL [Concomitant]
     Dosage: 200 MG, QHS
     Route: 048
     Dates: start: 20110121
  24. TEMAZEPAM [Concomitant]
     Dosage: 15 MG, PRN
     Route: 048
     Dates: start: 20100622

REACTIONS (2)
  - CONVULSION [None]
  - GRAND MAL CONVULSION [None]
